FAERS Safety Report 11036880 (Version 1)
Quarter: 2015Q2

REPORT INFORMATION
  Report Type: Spontaneous
  Country: None (occurrence: None)
  Receive Date: 20150415
  Receipt Date: 20150415
  Transmission Date: 20150821
  Serious: Yes (Disabling)
  Sender: FDA-Public Use
  Company Number: None

PATIENT
  Age: 70 Year
  Sex: Male
  Weight: 67 kg

DRUGS (3)
  1. HERBAL REMEDIES [Concomitant]
  2. ABIRATERONE [Suspect]
     Active Substance: ABIRATERONE
     Indication: PROSTATE CANCER
     Dosage: EACH MONTH
  3. STEM CELL THERAPY TREATMENT [Concomitant]

REACTIONS (5)
  - Asthenia [None]
  - Muscle atrophy [None]
  - Abasia [None]
  - Myalgia [None]
  - Metastases to bone [None]

NARRATIVE: CASE EVENT DATE: 20150413
